FAERS Safety Report 12965816 (Version 3)
Quarter: 2018Q3

REPORT INFORMATION
  Report Type: Report from Study
  Country: US (occurrence: US)
  Receive Date: 20161122
  Receipt Date: 20180815
  Transmission Date: 20181010
  Serious: Yes (Death, Hospitalization)
  Sender: FDA-Public Use
  Company Number: US-KERYX BIOPHARMACEUTICALS, INC.-2016US002366

PATIENT
  Age: 68 Year
  Sex: Female

DRUGS (1)
  1. AURYXIA [Suspect]
     Active Substance: TETRAFERRIC TRICITRATE DECAHYDRATE
     Indication: BLOOD PHOSPHORUS INCREASED
     Dosage: 2 G (2 TABLETS), TID
     Dates: start: 20160502

REACTIONS (3)
  - Off label use [Unknown]
  - Intestinal ischaemia [Fatal]
  - Limb injury [Unknown]

NARRATIVE: CASE EVENT DATE: 20161001
